FAERS Safety Report 6453105-8 (Version None)
Quarter: 2009Q4

REPORT INFORMATION
  Report Type: 
  Country: None (occurrence: None)
  Receive Date: 20091117
  Receipt Date: 20091105
  Transmission Date: 20100525
  Serious: Yes (Other)
  Sender: FDA-Public Use
  Company Number: 8054385

PATIENT
  Age: 62 Year
  Sex: Female
  Weight: 120 kg

DRUGS (11)
  1. LEVETIRACETAM [Suspect]
     Indication: EPILEPSY
     Dosage: 500 MG 2/D PO
     Route: 048
     Dates: start: 20090401
  2. AMITRIPTYLINE [Concomitant]
  3. DIPYRIDAMOLE [Concomitant]
  4. LORATADINE [Concomitant]
  5. MELOXICAM [Concomitant]
  6. OMEPRAZOLE [Concomitant]
  7. OXYBUTYNIN CHLORIDE [Concomitant]
  8. PERINDOPRIL [Concomitant]
  9. QVAR, NI INH [Concomitant]
  10. SIMVASTATIN [Concomitant]
  11. VENTOLIN /00139501/, NI INH [Concomitant]

REACTIONS (1)
  - DIABETES MELLITUS INADEQUATE CONTROL [None]
